FAERS Safety Report 25989117 (Version 1)
Quarter: 2025Q4

REPORT INFORMATION
  Report Type: Spontaneous
  Country: EU (occurrence: EU)
  Receive Date: 20251103
  Receipt Date: 20251103
  Transmission Date: 20260118
  Serious: Yes (Other)
  Sender: AUROBINDO
  Company Number: EU-AFSSAPS-CN2024000657

PATIENT
  Age: 17 Year
  Sex: Female

DRUGS (3)
  1. SERTRALINE HYDROCHLORIDE [Interacting]
     Active Substance: SERTRALINE HYDROCHLORIDE
     Indication: Post-traumatic stress disorder
     Dosage: 25 MILLIGRAM, ONCE A DAY (25 MG / J)
     Route: 048
     Dates: start: 20240117, end: 20240121
  2. CYAMEMAZINE [Interacting]
     Active Substance: CYAMEMAZINE
     Indication: Anxiety
     Dosage: 75 MILLIGRAM, ONCE A DAY (50 MG/DAY + 25 MG IF NEEDED)
     Route: 048
     Dates: start: 20240117, end: 20240121
  3. ATARAX [Interacting]
     Active Substance: HYDROXYZINE HYDROCHLORIDE
     Indication: Anxiety
     Dosage: 75 MILLIGRAM, ONCE A DAY (75 MG / J)
     Route: 048
     Dates: start: 20240117, end: 20240121

REACTIONS (2)
  - Sinus tachycardia [Recovered/Resolved]
  - Labelled drug-drug interaction issue [Recovered/Resolved]

NARRATIVE: CASE EVENT DATE: 20240121
